FAERS Safety Report 7091214-3 (Version None)
Quarter: 2010Q4

REPORT INFORMATION
  Report Type: 
  Country: None (occurrence: None)
  Receive Date: 20101109
  Receipt Date: 20101101
  Transmission Date: 20110411
  Serious: Yes (Death)
  Sender: FDA-Public Use
  Company Number: TR-SANOFI-AVENTIS-D01200704375

PATIENT
  Age: 69 Year
  Sex: Male
  Weight: 75 kg

DRUGS (11)
  1. IDRAPARINUX BIOTINYLATED [Suspect]
     Indication: PULMONARY EMBOLISM
     Dosage: DOSE TEXT: 3 MG OF 1/WEEK SC SSR126517 + PLACEBO WARFARIN
     Dates: start: 20070607, end: 20070628
  2. ENOXAPARIN SODIUM [Suspect]
     Indication: PULMONARY EMBOLISM
     Dosage: UNIT DOSE: 1 MG/KG
     Route: 058
     Dates: start: 20070605, end: 20070613
  3. MAXIPIME [Concomitant]
     Indication: PNEUMONIA
     Route: 065
     Dates: start: 20070604, end: 20070618
  4. DEXPANTHENOL [Concomitant]
     Route: 065
     Dates: start: 20070608, end: 20070609
  5. IBUPROFEN [Concomitant]
     Indication: COUGH
     Route: 065
     Dates: start: 20070604, end: 20070618
  6. FORADIL [Concomitant]
  7. SPIRIVA [Concomitant]
  8. VELCADE [Concomitant]
     Indication: MULTIPLE MYELOMA
     Dates: start: 20070521, end: 20070521
  9. VELCADE [Concomitant]
     Dates: start: 20070522, end: 20070522
  10. DEKORT [Concomitant]
     Indication: MULTIPLE MYELOMA
     Dates: start: 20070521, end: 20070521
  11. DEKORT [Concomitant]
     Dates: start: 20070522, end: 20070522

REACTIONS (1)
  - SUDDEN DEATH [None]
